FAERS Safety Report 9694377 (Version 2)
Quarter: 2013Q4

REPORT INFORMATION
  Report Type: Spontaneous
  Country: AU (occurrence: AU)
  Receive Date: 20131118
  Receipt Date: 20131118
  Transmission Date: 20140711
  Serious: Yes (Hospitalization, Other)
  Sender: FDA-Public Use
  Company Number: AU-ABBVIE-07P-008-0370738-00

PATIENT
  Age: 44 Year
  Sex: Female

DRUGS (3)
  1. EPILIM [Suspect]
     Indication: PETIT MAL EPILEPSY
     Route: 048
     Dates: start: 200607
  2. EPILIM [Suspect]
     Indication: EYE MOVEMENT DISORDER
     Route: 048
     Dates: start: 200705
  3. LAMICTAL [Concomitant]

REACTIONS (14)
  - Hair texture abnormal [Unknown]
  - Pain in extremity [Unknown]
  - Lid sulcus deepened [Unknown]
  - Coordination abnormal [Unknown]
  - Depressed level of consciousness [Unknown]
  - Headache [Unknown]
  - Grand mal convulsion [Unknown]
  - Fatigue [Unknown]
  - Fatigue [Unknown]
  - Disturbance in attention [Unknown]
  - Alopecia [Unknown]
  - Drug ineffective [Unknown]
  - Petit mal epilepsy [Unknown]
  - Condition aggravated [Unknown]
